FAERS Safety Report 12235883 (Version 4)
Quarter: 2017Q3

REPORT INFORMATION
  Report Type: Spontaneous
  Country: CA (occurrence: CA)
  Receive Date: 20160404
  Receipt Date: 20170928
  Transmission Date: 20171127
  Serious: Yes (Hospitalization, Other)
  Sender: FDA-Public Use
  Company Number: CA-PFIZER INC-2016190714

PATIENT
  Age: 39 Year
  Sex: Female

DRUGS (2)
  1. PREDNISOLONE. [Suspect]
     Active Substance: PREDNISOLONE
     Indication: OPTIC NEURITIS
     Dosage: 60 MG, DAILY, (HIGH DOSE)
     Route: 048
  2. HYDROCORTISONE SODIUM SUCCINATE [Suspect]
     Active Substance: HYDROCORTISONE SODIUM SUCCINATE
     Indication: OPTIC NEURITIS
     Dosage: 150 MG, UNK, (STRESS DOSES), HIGH DOSE
     Route: 042

REACTIONS (1)
  - Coronary artery dissection [Recovered/Resolved]
